FAERS Safety Report 11724327 (Version 2)
Quarter: 2016Q1

REPORT INFORMATION
  Report Type: Spontaneous
  Country: AT (occurrence: AT)
  Receive Date: 20151111
  Receipt Date: 20160129
  Transmission Date: 20160525
  Serious: Yes (Hospitalization)
  Sender: FDA-Public Use
  Company Number: AT-ABBVIE-15P-009-1471686-00

PATIENT
  Age: 76 Year
  Sex: Male
  Weight: 54 kg

DRUGS (13)
  1. DUODOPA [Suspect]
     Active Substance: CARBIDOPA\LEVODOPA
     Indication: PARKINSON^S DISEASE
     Dosage: 16 HOUR THERAPY:MD: 8.5 ML; CR: 6AM-12PM 2.5 ML/H, 12PM TO 10PM 2.7 ML/H; ED: 3.0 ML
     Route: 050
     Dates: start: 20110509
  2. CLOZAPIN [Concomitant]
     Active Substance: CLOZAPINE
     Indication: PRODUCT USED FOR UNKNOWN INDICATION
     Dosage: 0-0-0-1
  3. ZALDEN [Concomitant]
     Indication: PRODUCT USED FOR UNKNOWN INDICATION
  4. CLOZAPIN [Concomitant]
     Active Substance: CLOZAPINE
     Dosage: 0-0-0-0.5
  5. CALCIUM GLYCEROPHOSPHATE\CELLULOSE\POLYETHYLENE GLYCOL\SACCHARIN SODIUM\SODIUM HYDROXIDE\SODIUM LAURYL SULFATE\SODIUM MAGNESIUM SILICATE\SODIUM MONOFLUOROPHOSPHATE\SORBITOL\WATER [Concomitant]
     Active Substance: CALCIUM GLYCEROPHOSPHATE\POLYETHYLENE GLYCOLS\POWDERED CELLULOSE\SACCHARIN SODIUM DIHYDRATE\SODIUM HYDROXIDE\SODIUM LAURYL SULFATE\SODIUM MAGNESIUM SILICATE\SODIUM MONOFLUOROPHOSPHATE\SORBITOL\WATER
     Indication: PRODUCT USED FOR UNKNOWN INDICATION
  6. RIVASTIGMIN [Concomitant]
     Active Substance: RIVASTIGMINE
     Indication: DEMENTIA
  7. PANTOLOC [Concomitant]
     Active Substance: PANTOPRAZOLE SODIUM
     Indication: PRODUCT USED FOR UNKNOWN INDICATION
  8. LEVODOPA/BENSERAZIDE [Concomitant]
     Active Substance: BENSERAZIDE\LEVODOPA
     Indication: PRODUCT USED FOR UNKNOWN INDICATION
  9. AGLANDIN [Concomitant]
     Indication: PRODUCT USED FOR UNKNOWN INDICATION
  10. EXELON [Concomitant]
     Active Substance: RIVASTIGMINE TARTRATE
     Indication: PRODUCT USED FOR UNKNOWN INDICATION
  11. SPASMOLYT [Concomitant]
     Indication: PRODUCT USED FOR UNKNOWN INDICATION
  12. LEPONEX [Concomitant]
     Active Substance: CLOZAPINE
     Indication: PRODUCT USED FOR UNKNOWN INDICATION
  13. NEBIVOLOL. [Concomitant]
     Active Substance: NEBIVOLOL
     Indication: PRODUCT USED FOR UNKNOWN INDICATION

REACTIONS (5)
  - Gastric ulcer [Unknown]
  - Pneumonia [Recovered/Resolved]
  - Stoma site discharge [Unknown]
  - Stoma site hypergranulation [Recovered/Resolved]
  - Stoma site hypergranulation [Unknown]

NARRATIVE: CASE EVENT DATE: 2011
